FAERS Safety Report 9555794 (Version 1)
Quarter: 2013Q3

REPORT INFORMATION
  Report Type: Spontaneous
  Country: US (occurrence: None)
  Receive Date: 20130925
  Receipt Date: 20130925
  Transmission Date: 20140515
  Serious: No
  Sender: FDA-Public Use
  Company Number: None

PATIENT
  Age: 11 Year
  Sex: Male
  Weight: 45.81 kg

DRUGS (1)
  1. STRATTERA [Suspect]
     Indication: ATTENTION DEFICIT/HYPERACTIVITY DISORDER
     Dosage: TRIAL PACK
     Route: 048
     Dates: start: 20130917, end: 20130924

REACTIONS (5)
  - Fatigue [None]
  - Dysarthria [None]
  - Aphagia [None]
  - Fluid intake reduced [None]
  - Thinking abnormal [None]
